FAERS Safety Report 7356781-0 (Version None)
Quarter: 2011Q1

REPORT INFORMATION
  Report Type: 
  Country: None (occurrence: None)
  Receive Date: 20110316
  Receipt Date: 20110304
  Transmission Date: 20110831
  Serious: Yes (Other)
  Sender: FDA-Public Use
  Company Number: US-SANOFI-AVENTIS-2011SA013964

PATIENT
  Sex: Female

DRUGS (2)
  1. PLAVIX [Suspect]
     Route: 065
  2. VENLAFAXINE [Suspect]
     Route: 065
     Dates: start: 20081001

REACTIONS (3)
  - BALANCE DISORDER [None]
  - SKULL FRACTURE [None]
  - FALL [None]
